FAERS Safety Report 5572213-7 (Version None)
Quarter: 2007Q4

REPORT INFORMATION
  Report Type: 
  Country: None (occurrence: None)
  Receive Date: 20071221
  Receipt Date: 20071213
  Transmission Date: 20080405
  Serious: Yes (Other)
  Sender: FDA-Public Use
  Company Number: US-PFIZER INC-2007105021

PATIENT
  Sex: Female

DRUGS (2)
  1. CHANTIX [Suspect]
  2. XANAX [Suspect]

REACTIONS (3)
  - ANXIETY [None]
  - PARANOIA [None]
  - SUICIDAL BEHAVIOUR [None]
